FAERS Safety Report 24418304 (Version 2)
Quarter: 2025Q3

REPORT INFORMATION
  Report Type: Spontaneous
  Country: US (occurrence: US)
  Receive Date: 20241009
  Receipt Date: 20250813
  Transmission Date: 20251020
  Serious: No
  Sender: SANOFI AVENTIS
  Company Number: US-SA-2024SA287863

PATIENT
  Age: 9 Year
  Sex: Male

DRUGS (18)
  1. DUPIXENT [Suspect]
     Active Substance: DUPILUMAB
     Indication: Dermatitis atopic
     Dosage: 200 MG, QOW
     Route: 058
  2. ALBUTEROL SULFATE [Concomitant]
     Active Substance: ALBUTEROL SULFATE
  3. ALBUTEROL SULFATE [Concomitant]
     Active Substance: ALBUTEROL SULFATE
  4. CETIRIZINE [Concomitant]
     Active Substance: CETIRIZINE HYDROCHLORIDE
  5. CLONIDINE [Concomitant]
     Active Substance: CLONIDINE
  6. CYPROHEPTADINE [Concomitant]
     Active Substance: CYPROHEPTADINE
  7. DEXMETHYLPHENIDATE [Concomitant]
     Active Substance: DEXMETHYLPHENIDATE
  8. EPINEPHRINE [Concomitant]
     Active Substance: EPINEPHRINE
  9. FAMOTIDINE [Concomitant]
     Active Substance: FAMOTIDINE
  10. FLOVENT [Concomitant]
     Active Substance: FLUTICASONE PROPIONATE
  11. FLUTICASONE [Concomitant]
     Active Substance: FLUTICASONE
  12. HYDROXYZINE HYDROCHLORIDE [Concomitant]
     Active Substance: HYDROXYZINE HYDROCHLORIDE
  13. IBUPROFEN [Concomitant]
     Active Substance: IBUPROFEN
  14. PREDNISOLONE [Concomitant]
     Active Substance: PREDNISOLONE
  15. TACROLIMUS [Concomitant]
     Active Substance: TACROLIMUS
  16. TRIAMCINOLONE [Concomitant]
     Active Substance: TRIAMCINOLONE
  17. VITAMIN D NOS [Concomitant]
     Active Substance: CHOLECALCIFEROL\ERGOCALCIFEROL
  18. VITAMIN D3 [Concomitant]
     Active Substance: CHOLECALCIFEROL

REACTIONS (5)
  - Sleep disorder due to a general medical condition [Unknown]
  - Impaired quality of life [Unknown]
  - Skin discomfort [Unknown]
  - Rash [Unknown]
  - Dermatitis [Unknown]
